FAERS Safety Report 24361786 (Version 1)
Quarter: 2024Q3

REPORT INFORMATION
  Report Type: Spontaneous
  Country: US (occurrence: None)
  Receive Date: 20240924
  Receipt Date: 20240924
  Transmission Date: 20241017
  Serious: No
  Sender: Public
  Company Number: None

PATIENT
  Age: 42 Year
  Sex: Male

DRUGS (1)
  1. TALTZ [Suspect]
     Active Substance: IXEKIZUMAB
     Indication: Psoriasis
     Dosage: FREQUENCY : MONTHLY;?
     Route: 058
     Dates: start: 202406

REACTIONS (6)
  - Fatigue [None]
  - Post procedural complication [None]
  - Pharyngitis streptococcal [None]
  - Visual field defect [None]
  - Ocular vascular disorder [None]
  - Therapy interrupted [None]
